FAERS Safety Report 14992616 (Version 1)
Quarter: 2018Q2

REPORT INFORMATION
  Report Type: Spontaneous
  Country: ES (occurrence: ES)
  Receive Date: 20180609
  Receipt Date: 20180609
  Transmission Date: 20180711
  Serious: Yes (Other)
  Sender: FDA-Public Use
  Company Number: ES-TEVA-2018-ES-903323

PATIENT
  Age: 60 Year
  Sex: Female

DRUGS (5)
  1. TORASEMIDA (2351A) [Concomitant]
     Route: 065
  2. SILDENAFIL. [Suspect]
     Active Substance: SILDENAFIL
     Route: 065
     Dates: start: 20170309
  3. BOSENT?N 62,5 MG COMPRIMIDO [Suspect]
     Active Substance: BOSENTAN
     Indication: PULMONARY HYPERTENSION
     Dosage: COMPRESSED
     Route: 065
     Dates: start: 20170309, end: 20170512
  4. METFORMINA 850 MG COMPRIMIDO [Concomitant]
     Route: 065
  5. PROPRANOLOL (2218A) [Concomitant]
     Route: 065

REACTIONS (4)
  - Asthenia [Recovered/Resolved]
  - Joint swelling [Recovered/Resolved]
  - Swelling face [Recovered/Resolved]
  - Dyspnoea [Recovered/Resolved]

NARRATIVE: CASE EVENT DATE: 20170310
